FAERS Safety Report 6466333-2 (Version None)
Quarter: 2009Q4

REPORT INFORMATION
  Report Type: 
  Country: None (occurrence: None)
  Receive Date: 20091202
  Receipt Date: 20091126
  Transmission Date: 20100525
  Serious: Yes (Hospitalization)
  Sender: FDA-Public Use
  Company Number: GB-ROCHE-671501

PATIENT
  Sex: Female
  Weight: 66 kg

DRUGS (4)
  1. CAPECITABINE [Suspect]
     Dosage: LAST DOSE PRIOR TO SAE:30 JUNE 2009. DOSE REPORTED AS:45150.CYCLE:3
     Route: 048
     Dates: start: 20090519
  2. BEVACIZUMAB [Suspect]
     Dosage: LAST DOSE PRIOR TO SAE:30 JUNE 2009. DOSE REPORTED AS:502.CYCLE 3
     Route: 042
     Dates: start: 20090519
  3. CISPLATIN [Suspect]
     Dosage: LAST DOSE PRIOR TO SAE:30 JUNE 2009. DOSE REPORTED AS:100. CYCLE 3
     Route: 042
     Dates: start: 20090519
  4. EPIRUBICIN [Suspect]
     Dosage: LAST DOSE PRIOR TO SAE:30 JUNE 2009. DOSE REPORTED AS:85. CYCLE 3.
     Route: 042
     Dates: start: 20090519

REACTIONS (1)
  - BILIARY TRACT DISORDER [None]
